FAERS Safety Report 25094570 (Version 1)
Quarter: 2025Q1

REPORT INFORMATION
  Report Type: Spontaneous
  Country: US (occurrence: None)
  Receive Date: 20250318
  Receipt Date: 20250318
  Transmission Date: 20250409
  Serious: No
  Sender: FDA-CTU
  Company Number: None

PATIENT
  Age: 32 Year
  Sex: Female
  Weight: 70.2 kg

DRUGS (2)
  1. NALTREXONE HYDROCHLORIDE [Suspect]
     Active Substance: NALTREXONE HYDROCHLORIDE
     Indication: Weight decreased
     Route: 048
     Dates: start: 20250317, end: 20250317
  2. BUPROPION HYDROCHLORIDE [Suspect]
     Active Substance: BUPROPION HYDROCHLORIDE
     Indication: Weight decreased
     Dosage: 30 TABLET(S) DAILY ORAL
     Route: 048
     Dates: start: 20250317, end: 20250317

REACTIONS (2)
  - Food poisoning [None]
  - Vertigo [None]

NARRATIVE: CASE EVENT DATE: 20250317
